FAERS Safety Report 23477306 (Version 1)
Quarter: 2024Q1

REPORT INFORMATION
  Report Type: Report from Study
  Country: US (occurrence: US)
  Receive Date: 20240204
  Receipt Date: 20240204
  Transmission Date: 20240410
  Serious: No
  Sender: FDA-Public Use
  Company Number: US-EXELIXIS-CABO-23067094

PATIENT
  Sex: Female

DRUGS (2)
  1. COMETRIQ [Suspect]
     Active Substance: CABOZANTINIB S-MALATE
     Indication: Thyroid cancer
     Dosage: 140 MG (1 X 80 AND 3 X 20 MG) QD
     Route: 048
     Dates: start: 202307
  2. COMETRIQ [Suspect]
     Active Substance: CABOZANTINIB S-MALATE
     Dosage: 140 MG (1 X 80 AND 3 X 20 MG) QD
     Route: 048

REACTIONS (4)
  - Dry throat [Unknown]
  - Ageusia [Unknown]
  - Anal haemorrhage [Unknown]
  - Diarrhoea [Unknown]
